FAERS Safety Report 20213683 (Version 1)
Quarter: 2021Q4

REPORT INFORMATION
  Report Type: Spontaneous
  Country: AU (occurrence: AU)
  Receive Date: 20211221
  Receipt Date: 20211221
  Transmission Date: 20220303
  Serious: Yes (Hospitalization)
  Sender: FDA-Public Use
  Company Number: AU-TASMAN PHARMA, INC.-2021TSM00357

PATIENT
  Sex: Male

DRUGS (49)
  1. CLOZAPINE [Suspect]
     Active Substance: CLOZAPINE
     Dosage: 550 MG
     Dates: start: 20140604, end: 20140630
  2. CLOZAPINE [Suspect]
     Active Substance: CLOZAPINE
     Dosage: 600 MG
     Dates: start: 20141020, end: 20141118
  3. CLOZAPINE [Suspect]
     Active Substance: CLOZAPINE
     Dosage: 650 MG
     Dates: start: 20141119, end: 20141212
  4. CLOZAPINE [Suspect]
     Active Substance: CLOZAPINE
     Dosage: 650 MG
     Dates: start: 20150207, end: 20150308
  5. CLOZAPINE [Suspect]
     Active Substance: CLOZAPINE
     Dosage: 600 MG
     Dates: start: 20170818, end: 20170827
  6. CLOZAPINE [Suspect]
     Active Substance: CLOZAPINE
     Dosage: 700 MG
     Dates: start: 20170828, end: 20170928
  7. CLOZAPINE [Suspect]
     Active Substance: CLOZAPINE
     Dosage: 600 MG
     Dates: start: 20211118, end: 20211123
  8. CLOZAPINE [Suspect]
     Active Substance: CLOZAPINE
     Dosage: 650 MG
     Dates: start: 20211124, end: 20211129
  9. CLOZAPINE [Suspect]
     Active Substance: CLOZAPINE
     Dosage: 550 MG
     Dates: start: 20140701, end: 20140807
  10. CLOZAPINE [Suspect]
     Active Substance: CLOZAPINE
     Dosage: 600 MG
     Dates: start: 20141008, end: 20141019
  11. CLOZAPINE [Suspect]
     Active Substance: CLOZAPINE
     Dosage: 700 MG
     Dates: start: 20151210, end: 20151213
  12. CLOZAPINE [Suspect]
     Active Substance: CLOZAPINE
     Dosage: 700 MG
     Dates: start: 20160727, end: 20160831
  13. CLOZAPINE [Suspect]
     Active Substance: CLOZAPINE
     Dosage: 700 MG
     Dates: start: 20170411, end: 20170511
  14. CLOZAPINE [Suspect]
     Active Substance: CLOZAPINE
     Dosage: 700 MG
     Dates: start: 20180406, end: 20180517
  15. CLOZAPINE [Suspect]
     Active Substance: CLOZAPINE
     Dosage: 750 MG
     Dates: start: 20180518, end: 20180607
  16. CLOZAPINE [Suspect]
     Active Substance: CLOZAPINE
     Dosage: 750 MG
     Dates: start: 20180903, end: 20180904
  17. CLOZAPINE [Suspect]
     Active Substance: CLOZAPINE
     Dosage: 750 MG
     Dates: start: 20200323, end: 20200421
  18. CLOZAPINE [Suspect]
     Active Substance: CLOZAPINE
     Dosage: 12.5 MG
     Dates: start: 20200904, end: 20200910
  19. CLOZAPINE [Suspect]
     Active Substance: CLOZAPINE
     Dosage: 250 MG
     Dates: start: 20200911, end: 20200916
  20. CLOZAPINE [Suspect]
     Active Substance: CLOZAPINE
     Dosage: 525 MG
     Dates: start: 20200917, end: 20200924
  21. CLOZAPINE [Suspect]
     Active Substance: CLOZAPINE
     Dosage: 600 MG
     Dates: start: 20200925, end: 20201001
  22. CLOZAPINE [Suspect]
     Active Substance: CLOZAPINE
     Dosage: 700 MG
     Dates: start: 20201002, end: 20201011
  23. CLOZAPINE [Suspect]
     Active Substance: CLOZAPINE
     Dosage: 750 MG
     Dates: start: 20201012, end: 20201129
  24. CLOZAPINE [Suspect]
     Active Substance: CLOZAPINE
     Dosage: 750 MG
     Dates: start: 20201221, end: 20210412
  25. CLOZAPINE [Suspect]
     Active Substance: CLOZAPINE
     Dosage: 750 MG
     Dates: start: 20210505, end: 20210609
  26. CLOZAPINE [Suspect]
     Active Substance: CLOZAPINE
     Dosage: 550 MG
     Dates: start: 20140808, end: 20140921
  27. CLOZAPINE [Suspect]
     Active Substance: CLOZAPINE
     Dosage: 600 MG
     Dates: start: 20140922, end: 20141007
  28. CLOZAPINE [Suspect]
     Active Substance: CLOZAPINE
     Dosage: 650 MG
     Dates: start: 20141213, end: 20150206
  29. CLOZAPINE [Suspect]
     Active Substance: CLOZAPINE
     Dosage: 650 MG
     Dates: start: 20150309, end: 20150629
  30. CLOZAPINE [Suspect]
     Active Substance: CLOZAPINE
     Dosage: 700 MG
     Dates: start: 20150630, end: 20151209
  31. CLOZAPINE [Suspect]
     Active Substance: CLOZAPINE
     Dosage: 700 MG
     Dates: start: 20151214, end: 20160726
  32. CLOZAPINE [Suspect]
     Active Substance: CLOZAPINE
     Dosage: 700 MG
     Dates: start: 20160901, end: 20170410
  33. CLOZAPINE [Suspect]
     Active Substance: CLOZAPINE
     Dosage: 700 MG
     Dates: start: 20170512, end: 20170716
  34. CLOZAPINE [Suspect]
     Active Substance: CLOZAPINE
     Dosage: 25 MG
     Dates: start: 20170721, end: 20170727
  35. CLOZAPINE [Suspect]
     Active Substance: CLOZAPINE
     Dosage: 300 MG
     Dates: start: 20170728, end: 20170803
  36. CLOZAPINE [Suspect]
     Active Substance: CLOZAPINE
     Dosage: 600 MG
     Dates: start: 20170804, end: 20170817
  37. CLOZAPINE [Suspect]
     Active Substance: CLOZAPINE
     Dosage: 700 MG
     Dates: start: 20170929, end: 20180405
  38. CLOZAPINE [Suspect]
     Active Substance: CLOZAPINE
     Dosage: 750 MG
     Dates: start: 20180608, end: 20180902
  39. CLOZAPINE [Suspect]
     Active Substance: CLOZAPINE
     Dosage: 750 MG
     Dates: start: 20180905, end: 20200322
  40. CLOZAPINE [Suspect]
     Active Substance: CLOZAPINE
     Dosage: 750 MG
     Dates: start: 20200422, end: 20200813
  41. CLOZAPINE [Suspect]
     Active Substance: CLOZAPINE
     Dosage: 700 MG
     Dates: start: 20200814, end: 20200831
  42. CLOZAPINE [Suspect]
     Active Substance: CLOZAPINE
     Dosage: 750 MG
     Dates: start: 20201130, end: 20201220
  43. CLOZAPINE [Suspect]
     Active Substance: CLOZAPINE
     Dosage: 750 MG
     Dates: start: 20210413, end: 20210504
  44. CLOZAPINE [Suspect]
     Active Substance: CLOZAPINE
     Dosage: 750 MG
     Dates: start: 20210610, end: 20211024
  45. CLOZAPINE [Suspect]
     Active Substance: CLOZAPINE
     Dosage: 150 MG
     Dates: start: 20211029, end: 20211103
  46. CLOZAPINE [Suspect]
     Active Substance: CLOZAPINE
     Dosage: 400 MG
     Dates: start: 20211104, end: 20211110
  47. CLOZAPINE [Suspect]
     Active Substance: CLOZAPINE
     Dosage: 600 MG
     Dates: start: 20211111, end: 20211117
  48. CLOZAPINE [Suspect]
     Active Substance: CLOZAPINE
     Dosage: 850 MG
     Dates: start: 20211130, end: 20211207
  49. CLOZAPINE [Suspect]
     Active Substance: CLOZAPINE
     Dosage: 950 MG
     Dates: start: 20211208

REACTIONS (3)
  - Hospitalisation [Unknown]
  - Off label use [Not Recovered/Not Resolved]
  - Treatment noncompliance [Recovered/Resolved]

NARRATIVE: CASE EVENT DATE: 20170716
